FAERS Safety Report 23582363 (Version 1)
Quarter: 2024Q1

REPORT INFORMATION
  Report Type: Spontaneous
  Country: JP (occurrence: JP)
  Receive Date: 20240229
  Receipt Date: 20240229
  Transmission Date: 20240410
  Serious: Yes (Death, Hospitalization, Other)
  Sender: FDA-Public Use
  Company Number: JP-STRIDES ARCOLAB LIMITED-2024SP002412

PATIENT
  Age: 46 Year
  Sex: Female

DRUGS (3)
  1. TACROLIMUS [Suspect]
     Active Substance: TACROLIMUS
     Indication: Lupus nephritis
     Dosage: 3 MILLIGRAM, PER DAY
     Route: 065
  2. MYCOPHENOLATE MOFETIL [Suspect]
     Active Substance: MYCOPHENOLATE MOFETIL
     Indication: Lupus nephritis
     Dosage: UNK
     Route: 065
  3. PREDNISOLONE [Suspect]
     Active Substance: PREDNISOLONE
     Indication: Lupus nephritis
     Dosage: 45 MILLIGRAM, PER DAY
     Route: 065

REACTIONS (4)
  - Shock haemorrhagic [Fatal]
  - Disseminated varicella zoster virus infection [Fatal]
  - Renal impairment [Unknown]
  - Off label use [Unknown]
